FAERS Safety Report 8607603-9 (Version None)
Quarter: 2012Q3

REPORT INFORMATION
  Report Type: 
  Country: None (occurrence: None)
  Receive Date: 20120821
  Receipt Date: 20120813
  Transmission Date: 20120928
  Serious: Yes (Other)
  Sender: FDA-Public Use
  Company Number: US-US-EMD SERONO, INC.-7154395

PATIENT
  Sex: Female

DRUGS (1)
  1. REBIF [Suspect]
     Indication: PRODUCT USED FOR UNKNOWN INDICATION
     Route: 058
     Dates: start: 20120710

REACTIONS (9)
  - TOOTH ABSCESS [None]
  - PRESYNCOPE [None]
  - INFLUENZA LIKE ILLNESS [None]
  - INJECTION SITE PAIN [None]
  - SUICIDAL IDEATION [None]
  - DYSPNOEA [None]
  - COUGH [None]
  - INJECTION SITE NODULE [None]
  - DEPRESSION [None]
